FAERS Safety Report 8085154-0 (Version None)
Quarter: 2012Q1

REPORT INFORMATION
  Report Type: 
  Country: None (occurrence: None)
  Receive Date: 20120128
  Receipt Date: 20110315
  Transmission Date: 20120608
  Serious: No
  Sender: FDA-Public Use
  Company Number: US-ABBOTT-11P-163-0711606-00

PATIENT
  Age: 46 Year
  Sex: Female

DRUGS (6)
  1. PERCOCET [Concomitant]
     Indication: PAIN
     Dosage: 10/325MG
     Route: 048
  2. BACLOFEN [Concomitant]
     Indication: MUSCLE SPASMS
     Dosage: 2 TABS THREE TIMES A DAY
  3. CITALOPRAM [Concomitant]
     Indication: DEPRESSION
     Route: 048
  4. HUMIRA [Suspect]
     Indication: RHEUMATOID ARTHRITIS
     Dates: start: 20101001
  5. METHADONE HCL [Concomitant]
     Indication: PAIN
     Route: 048
  6. OMEPRAZOLE [Concomitant]
     Indication: GASTROOESOPHAGEAL REFLUX DISEASE
     Route: 048

REACTIONS (3)
  - DEVICE MALFUNCTION [None]
  - BRONCHITIS [None]
  - VULVAL ABSCESS [None]
